FAERS Safety Report 6685753-4 (Version None)
Quarter: 2010Q2

REPORT INFORMATION
  Report Type: 
  Country: None (occurrence: None)
  Receive Date: 20100415
  Receipt Date: 20100415
  Transmission Date: 20101027
  Serious: Yes (Life-Threatening)
  Sender: FDA-Public Use
  Company Number: None

PATIENT
  Age: 54 Year
  Sex: Female
  Weight: 63.5036 kg

DRUGS (1)
  1. SAVELLA [Suspect]
     Indication: FIBROMYALGIA
     Dosage: 50 MG 2X DAILY
     Dates: start: 20100401, end: 20100408

REACTIONS (4)
  - BLOOD PRESSURE INCREASED [None]
  - GASTRIC DISORDER [None]
  - HEADACHE [None]
  - SUICIDAL IDEATION [None]
